FAERS Safety Report 9000233 (Version 5)
Quarter: 2013Q1

REPORT INFORMATION
  Report Type: Spontaneous
  Country: US (occurrence: US)
  Receive Date: 20130106
  Receipt Date: 20130114
  Transmission Date: 20140127
  Serious: No
  Sender: FDA-Public Use
  Company Number: US-TEVA-378201USA

PATIENT
  Sex: Male

DRUGS (3)
  1. NUVIGIL [Suspect]
     Indication: FATIGUE
     Dosage: 50 MILLIGRAM DAILY;
     Route: 048
     Dates: start: 201211
  2. NUVIGIL [Suspect]
     Dosage: 150 MILLIGRAM DAILY;
     Route: 048
  3. NUVIGIL [Suspect]
     Dosage: ON AT LEAST ONE OCCASION
     Route: 048

REACTIONS (8)
  - Ocular hyperaemia [Unknown]
  - Eye pruritus [Unknown]
  - Fatigue [Unknown]
  - Drug ineffective [Unknown]
  - Off label use [Unknown]
  - Incorrect dose administered [Unknown]
  - Eye pain [Unknown]
  - Abnormal sensation in eye [Unknown]
